FAERS Safety Report 15074587 (Version 1)
Quarter: 2018Q2

REPORT INFORMATION
  Report Type: Spontaneous
  Country: US (occurrence: US)
  Receive Date: 20180627
  Receipt Date: 20180627
  Transmission Date: 20180711
  Serious: Yes (Hospitalization, Other)
  Sender: FDA-Public Use
  Company Number: US-SAOL THERAPEUTICS-2018SAO00444

PATIENT
  Sex: Female
  Weight: 99.77 kg

DRUGS (3)
  1. BACLOFEN. [Suspect]
     Active Substance: BACLOFEN
     Dosage: 150 ?G, \DAY
     Route: 037
  2. BACLOFEN. [Suspect]
     Active Substance: BACLOFEN
     Indication: MUSCLE SPASTICITY
     Dosage: 960 ?G, \DAY
     Route: 037
  3. MORPHINE [Suspect]
     Active Substance: MORPHINE
     Route: 037

REACTIONS (10)
  - Therapeutic response decreased [Recovered/Resolved]
  - Device dislocation [Unknown]
  - Implant site extravasation [Unknown]
  - Muscle spasticity [Unknown]
  - Fall [Unknown]
  - Pruritus [Unknown]
  - Loss of consciousness [Unknown]
  - Movement disorder [Unknown]
  - Implant site inflammation [Unknown]
  - Implant site pain [Unknown]

NARRATIVE: CASE EVENT DATE: 201804
